FAERS Safety Report 5713866-X (Version None)
Quarter: 2008Q2

REPORT INFORMATION
  Report Type: 
  Country: None (occurrence: None)
  Receive Date: 20080421
  Receipt Date: 20080414
  Transmission Date: 20081010
  Serious: Yes (Death, Other)
  Sender: FDA-Public Use
  Company Number: 144-21880-08041113

PATIENT
  Sex: Female

DRUGS (2)
  1. REVLIMID [Suspect]
     Indication: MULTIPLE MYELOMA
     Dosage: 25 MG, DAILY FOR 21 DAYS, ORAL
     Route: 048
  2. DEXAMETHASONE TAB [Concomitant]

REACTIONS (3)
  - MULTIPLE MYELOMA [None]
  - PNEUMONIA [None]
  - SEPTIC SHOCK [None]
